FAERS Safety Report 14477618 (Version 1)
Quarter: 2018Q1

REPORT INFORMATION
  Report Type: Report from Study
  Country: US (occurrence: US)
  Receive Date: 20180201
  Receipt Date: 20180201
  Transmission Date: 20180509
  Serious: No
  Sender: FDA-Public Use
  Company Number: US-EXELIXIS-CABO-17010690

PATIENT
  Sex: Male

DRUGS (1)
  1. CABOMETYX [Suspect]
     Active Substance: CABOZANTINIB S-MALATE
     Indication: RENAL CELL CARCINOMA
     Dosage: 60 MG, QD
     Route: 048
     Dates: start: 201708

REACTIONS (6)
  - Impaired healing [Unknown]
  - Pain of skin [Unknown]
  - Erythema [Recovered/Resolved]
  - Dysgeusia [Unknown]
  - Arthralgia [Unknown]
  - Dry skin [Unknown]
